FAERS Safety Report 20908563 (Version 3)
Quarter: 2022Q3

REPORT INFORMATION
  Report Type: Spontaneous
  Country: US (occurrence: US)
  Receive Date: 20220603
  Receipt Date: 20220913
  Transmission Date: 20221027
  Serious: No
  Sender: FDA-Public Use
  Company Number: US-AMGEN-USASP2022092079

PATIENT
  Age: 49 Year
  Sex: Female

DRUGS (2)
  1. REPATHA [Suspect]
     Active Substance: EVOLOCUMAB
     Indication: Blood cholesterol increased
     Dosage: UNK, Q2WK
     Route: 065
     Dates: start: 202201
  2. ZETIA [Concomitant]
     Active Substance: EZETIMIBE
     Indication: Blood cholesterol abnormal

REACTIONS (2)
  - Device difficult to use [Unknown]
  - Influenza like illness [Recovered/Resolved]

NARRATIVE: CASE EVENT DATE: 20220520
